FAERS Safety Report 5714611-4 (Version None)
Quarter: 2008Q2

REPORT INFORMATION
  Report Type: 
  Country: None (occurrence: None)
  Receive Date: 20080423
  Receipt Date: 20080416
  Transmission Date: 20081010
  Serious: Yes (Life-Threatening, Hospitalization)
  Sender: FDA-Public Use
  Company Number: B0490535A

PATIENT
  Age: 3 Year
  Sex: Male

DRUGS (2)
  1. ALBENDAZOLE [Suspect]
     Indication: FILARIASIS LYMPHATIC
     Dosage: 400MG SINGLE DOSE
     Route: 048
     Dates: start: 20070624, end: 20070624
  2. DIETHYLCARBAMAZINE CITRATE [Suspect]
     Indication: FILARIASIS LYMPHATIC
     Dosage: 100MG SINGLE DOSE
     Route: 048
     Dates: start: 20070624, end: 20070624

REACTIONS (8)
  - CONVULSION [None]
  - DYSKINESIA [None]
  - ENCEPHALITIS [None]
  - GAZE PALSY [None]
  - LETHARGY [None]
  - OEDEMA [None]
  - TOXIC ENCEPHALOPATHY [None]
  - UNRESPONSIVE TO STIMULI [None]
